FAERS Safety Report 5447179-0 (Version None)
Quarter: 2007Q3

REPORT INFORMATION
  Report Type: 
  Country: None (occurrence: None)
  Receive Date: 20070910
  Receipt Date: 20070903
  Transmission Date: 20080115
  Serious: Yes (Other)
  Sender: FDA-Public Use
  Company Number: PHBS2007ES08921

PATIENT
  Age: 71 Year
  Sex: Female

DRUGS (2)
  1. SANDIMMUNE [Suspect]
     Indication: AUTOIMMUNE HEPATITIS
     Dosage: UNK, UNK
     Route: 065
  2. PREDNISONE [Concomitant]

REACTIONS (5)
  - ERYTHEMA [None]
  - HYPERTENSION [None]
  - RASH [None]
  - RASH MACULO-PAPULAR [None]
  - ROSACEA [None]
